FAERS Safety Report 24263422 (Version 3)
Quarter: 2024Q3

REPORT INFORMATION
  Report Type: Spontaneous
  Country: NL (occurrence: NL)
  Receive Date: 20240829
  Receipt Date: 20240919
  Transmission Date: 20241016
  Serious: Yes (Hospitalization, Other)
  Sender: BRISTOL MYERS SQUIBB
  Company Number: NL-BRISTOL-MYERS SQUIBB COMPANY-2024-136415

PATIENT
  Age: 86 Year
  Sex: Male

DRUGS (11)
  1. ELIQUIS [Suspect]
     Active Substance: APIXABAN
     Indication: Atrial fibrillation
     Route: 048
     Dates: start: 20201017, end: 20240610
  2. ELIQUIS [Suspect]
     Active Substance: APIXABAN
     Route: 048
     Dates: start: 20240625, end: 20240627
  3. ACORAMIDIS [Concomitant]
     Active Substance: ACORAMIDIS
     Route: 048
  4. COVID-19 VACCINE [Concomitant]
     Indication: COVID-19 prophylaxis
     Dates: start: 20210310
  5. COVID-19 VACCINE [Concomitant]
     Dates: start: 20210415
  6. LOSARTAN [Concomitant]
     Active Substance: LOSARTAN\LOSARTAN POTASSIUM
     Indication: Hypertension
     Route: 048
     Dates: start: 20040717
  7. PANTOPRAZOLE [Concomitant]
     Active Substance: PANTOPRAZOLE
     Indication: Prophylaxis
     Route: 048
  8. TIROSINT [Concomitant]
     Active Substance: LEVOTHYROXINE SODIUM
     Indication: Hypothyroidism
     Route: 048
     Dates: start: 20210913
  9. FUROSEMIDE [Concomitant]
     Active Substance: FUROSEMIDE
     Indication: Cardiac failure
  10. ACETAMINOPHEN [Concomitant]
     Active Substance: ACETAMINOPHEN
     Indication: Prophylaxis
     Dosage: AS NEEDED
     Route: 048
  11. MAGNESIUM HYDROXIDE [Concomitant]
     Active Substance: MAGNESIUM HYDROXIDE
     Indication: Prophylaxis
     Route: 048

REACTIONS (12)
  - Bladder telangiectasia [Recovering/Resolving]
  - Prostatic haemorrhage [Not Recovered/Not Resolved]
  - Urinary bladder haemorrhage [Not Recovered/Not Resolved]
  - Malaise [Unknown]
  - Renal impairment [Not Recovered/Not Resolved]
  - Hyperkalaemia [Unknown]
  - Cerebral atrophy [Unknown]
  - Asthenia [Unknown]
  - Periventricular leukomalacia [Unknown]
  - Cardiac failure [Not Recovered/Not Resolved]
  - Benign prostatic hyperplasia [Unknown]
  - Urinary tract infection [Unknown]

NARRATIVE: CASE EVENT DATE: 20240610
